FAERS Safety Report 20731621 (Version 4)
Quarter: 2022Q4

REPORT INFORMATION
  Report Type: Spontaneous
  Country: US (occurrence: US)
  Receive Date: 20220420
  Receipt Date: 20221030
  Transmission Date: 20230113
  Serious: No
  Sender: FDA-Public Use
  Company Number: US-SANOFI-01063971

PATIENT
  Age: 57 Year
  Sex: Male

DRUGS (1)
  1. TOUJEO [Suspect]
     Active Substance: INSULIN GLARGINE
     Indication: Type 2 diabetes mellitus
     Dosage: DRUG STRUCTURE DOSAGE : GMI ERROR DELETED INFO DRUG INTERVAL DOSAGE : ONCE A DAY DRUG TREATMENT DURA
     Route: 065

REACTIONS (1)
  - Blood glucose increased [Recovering/Resolving]
